FAERS Safety Report 13268006 (Version 1)
Quarter: 2017Q1

REPORT INFORMATION
  Report Type: Spontaneous
  Country: JP (occurrence: JP)
  Receive Date: 20170224
  Receipt Date: 20170224
  Transmission Date: 20170428
  Serious: Yes (Death)
  Sender: FDA-Public Use
  Company Number: PHJP2017JP001669

PATIENT
  Age: 83 Year
  Sex: Male

DRUGS (2)
  1. NEORAL [Suspect]
     Active Substance: CYCLOSPORINE
     Indication: INTERSTITIAL LUNG DISEASE
     Dosage: 200 MG, DOSAGE ADJUSTMENT
     Route: 048
     Dates: start: 201612
  2. PREDONINE [Suspect]
     Active Substance: PREDNISOLONE
     Indication: INTERSTITIAL LUNG DISEASE
     Dosage: DOSAGE ADJUSTMENT
     Route: 065

REACTIONS (4)
  - Hyponatraemia [Not Recovered/Not Resolved]
  - Interstitial lung disease [Fatal]
  - Product use issue [Unknown]
  - Pneumothorax [Fatal]

NARRATIVE: CASE EVENT DATE: 201612
